FAERS Safety Report 8461902-2 (Version None)
Quarter: 2012Q2

REPORT INFORMATION
  Report Type: 
  Country: None (occurrence: None)
  Receive Date: 20120625
  Receipt Date: 20120611
  Transmission Date: 20120825
  Serious: Yes (Hospitalization)
  Sender: FDA-Public Use
  Company Number: FR-CELGENEUS-056-50794-12061743

PATIENT
  Sex: Female
  Weight: 54 kg

DRUGS (5)
  1. LEVOTHYROXINE SODIUM [Concomitant]
     Indication: AUTOIMMUNE THYROIDITIS
     Dosage: 100 MILLIGRAM
     Route: 048
     Dates: start: 20090101
  2. ARANESP [Concomitant]
     Dosage: 500
     Route: 058
     Dates: start: 20120128, end: 20120521
  3. DELURSAN [Concomitant]
     Dosage: 50 MILLIGRAM
     Route: 048
     Dates: start: 20090101
  4. REVLIMID [Suspect]
     Dosage: 10 MILLIGRAM
     Route: 048
     Dates: start: 20120521, end: 20120603
  5. VIDAZA [Suspect]
     Dosage: 119 MILLIGRAM
     Route: 058
     Dates: start: 20120521, end: 20120527

REACTIONS (1)
  - NEUROPATHY PERIPHERAL [None]
